FAERS Safety Report 14454474 (Version 1)
Quarter: 2018Q1

REPORT INFORMATION
  Report Type: Spontaneous
  Country: US (occurrence: US)
  Receive Date: 20180128
  Receipt Date: 20180128
  Transmission Date: 20180509
  Serious: No
  Sender: FDA-Public Use
  Company Number: None

PATIENT
  Age: 28 Year
  Sex: Female
  Weight: 72 kg

DRUGS (1)
  1. BUPRENORPHINE HCL 8MG SUBLINGUAL TABLET GENERIC FOR SUBUTEX [Suspect]
     Active Substance: BUPRENORPHINE HYDROCHLORIDE
     Indication: DRUG DEPENDENCE
     Dosage: ?          QUANTITY:75 TABLET(S);?
     Route: 060
     Dates: start: 20180127, end: 20180127

REACTIONS (5)
  - Feeling abnormal [None]
  - Abdominal pain upper [None]
  - Decreased activity [None]
  - Hiccups [None]
  - Product substitution issue [None]

NARRATIVE: CASE EVENT DATE: 20180128
